FAERS Safety Report 17884528 (Version 1)
Quarter: 2020Q2

REPORT INFORMATION
  Report Type: Spontaneous
  Country: US (occurrence: US)
  Receive Date: 20200611
  Receipt Date: 20200611
  Transmission Date: 20200714
  Serious: Yes (Other)
  Sender: FDA-Public Use
  Company Number: None

PATIENT
  Age: 64 Year
  Sex: Female
  Weight: 63 kg

DRUGS (1)
  1. LOSARTAN 100MG TABLETS [Suspect]
     Active Substance: LOSARTAN
     Indication: HYPERTENSION
     Dosage: ?          QUANTITY:1 TABLET(S);?
     Route: 048
     Dates: start: 20200302, end: 20200513

REACTIONS (7)
  - Gastrointestinal pain [None]
  - Therapy non-responder [None]
  - Flatulence [None]
  - Lethargy [None]
  - Constipation [None]
  - Gastrointestinal disorder [None]
  - Muscle spasms [None]

NARRATIVE: CASE EVENT DATE: 20200311
